FAERS Safety Report 8382815-0 (Version None)
Quarter: 2012Q2

REPORT INFORMATION
  Report Type: 
  Country: None (occurrence: None)
  Receive Date: 20120524
  Receipt Date: 20120511
  Transmission Date: 20120825
  Serious: Yes (Hospitalization)
  Sender: FDA-Public Use
  Company Number: GR-JNJFOC-20120504239

PATIENT
  Sex: Male
  Weight: 75 kg

DRUGS (2)
  1. MICONAZOLE [Concomitant]
     Indication: DANDRUFF
     Route: 061
     Dates: start: 20111004
  2. PALIPERIDONE [Suspect]
     Indication: SCHIZOPHRENIA
     Route: 030
     Dates: start: 20111201

REACTIONS (1)
  - ANXIETY [None]
